FAERS Safety Report 9946063 (Version 1)
Quarter: 2014Q1

REPORT INFORMATION
  Report Type: Spontaneous
  Country: US (occurrence: US)
  Receive Date: 20140303
  Receipt Date: 20140303
  Transmission Date: 20141002
  Serious: No
  Sender: FDA-Public Use
  Company Number: US-AMGEN-USASP2013081723

PATIENT
  Age: 69 Year
  Sex: Female

DRUGS (1)
  1. ENBREL [Suspect]
     Indication: RHEUMATOID ARTHRITIS
     Dosage: 50 MG, Q7D
     Route: 058

REACTIONS (4)
  - Pruritus generalised [Unknown]
  - Injection site erythema [Unknown]
  - Injection site pain [Unknown]
  - Injection site bruising [Unknown]
